FAERS Safety Report 7514941-X (Version None)
Quarter: 2011Q2

REPORT INFORMATION
  Report Type: 
  Country: None (occurrence: None)
  Receive Date: 20110601
  Receipt Date: 20110519
  Transmission Date: 20111010
  Serious: Yes (Other)
  Sender: FDA-Public Use
  Company Number: BR-AMGEN-BRASP2010010518

PATIENT
  Age: 59 Year
  Sex: Female
  Weight: 80 kg

DRUGS (13)
  1. BROMAZEPAM [Concomitant]
     Dosage: 10 MG, UNK
     Dates: start: 20100901
  2. SINVACOR [Concomitant]
     Dosage: 20 MG, UNK
     Dates: start: 20080101
  3. ETANERCEPT [Suspect]
     Indication: RHEUMATOID ARTHRITIS
     Dosage: 50 MG, QWK
     Route: 058
     Dates: start: 20100903
  4. PREDNISOLONE [Suspect]
     Indication: PRODUCT USED FOR UNKNOWN INDICATION
     Dosage: 5 MG, UNK
  5. FOLIC ACID [Concomitant]
     Dosage: UNKNOWN DOSE, FOUR TIMES A WEEK
     Dates: start: 20020101
  6. VALIUM [Concomitant]
  7. METHOTREXATE SODIUM [Suspect]
     Dosage: 12.5 MG, WEEKLY
  8. MODURETIC 5-50 [Concomitant]
     Indication: HYPERTENSION
     Dosage: 25 MG, 1X/DAY
     Dates: start: 20040101
  9. NAPROSYN [Concomitant]
     Dosage: 500 MG, 2X/DAY
     Dates: start: 20020101
  10. PREDNISOLONE [Concomitant]
     Dosage: UNK
  11. ETANERCEPT [Suspect]
     Dosage: 25 MG, 2 TIMES/WK
     Route: 058
     Dates: start: 20101001, end: 20110201
  12. METHOTREXATE SODIUM [Suspect]
     Indication: PRODUCT USED FOR UNKNOWN INDICATION
     Dosage: 15 MG, WEEKLY
  13. OMEPRAZOLE [Concomitant]
     Dosage: UNK

REACTIONS (4)
  - OEDEMA PERIPHERAL [None]
  - PROTEINURIA [None]
  - WOUND [None]
  - PARALYSIS [None]
